FAERS Safety Report 19824084 (Version 1)
Quarter: 2021Q3

REPORT INFORMATION
  Report Type: Spontaneous
  Country: FR (occurrence: FR)
  Receive Date: 20210913
  Receipt Date: 20210913
  Transmission Date: 20211014
  Serious: Yes (Hospitalization)
  Sender: FDA-Public Use
  Company Number: FR-MYLANLABS-2021M1061251

PATIENT
  Age: 80 Year
  Sex: Male
  Weight: 63 kg

DRUGS (4)
  1. ROACTEMRA [Suspect]
     Active Substance: TOCILIZUMAB
     Indication: COVID-19
     Dosage: 500 MILLIGRAM, QD
     Route: 042
     Dates: start: 20210318, end: 20210319
  2. LINEZOLID. [Suspect]
     Active Substance: LINEZOLID
     Indication: ANTIBIOTIC THERAPY
     Dosage: 1200 MILLIGRAM, QD
     Route: 048
     Dates: start: 20210318, end: 20210322
  3. IMIPENEM [Suspect]
     Active Substance: IMIPENEM
     Indication: ANTIBIOTIC THERAPY
     Dosage: 500 MILLIGRAM, Q8H
     Route: 042
     Dates: start: 20210318, end: 20210323
  4. CILASTATINE [Suspect]
     Active Substance: CILASTATIN
     Indication: ANTIBIOTIC THERAPY
     Dosage: 500 MILLIGRAM, Q8H
     Route: 042
     Dates: start: 20210318, end: 20210323

REACTIONS (1)
  - Agranulocytosis [Not Recovered/Not Resolved]

NARRATIVE: CASE EVENT DATE: 20210322
